FAERS Safety Report 11631604 (Version 1)
Quarter: 2015Q4

REPORT INFORMATION
  Report Type: Spontaneous
  Country: US (occurrence: US)
  Receive Date: 20151015
  Receipt Date: 20151015
  Transmission Date: 20160304
  Serious: No
  Sender: FDA-Public Use
  Company Number: US-ASTRAZENECA-2015SE98088

PATIENT
  Sex: Male

DRUGS (3)
  1. ALBUTEROL WITH BUDESONIDE NEBULIZER [Concomitant]
     Dosage: UNKNOWN
     Route: 055
  2. FLUTICASONE FUROATE [Concomitant]
     Active Substance: FLUTICASONE FUROATE
     Route: 055
  3. SYMBICORT [Suspect]
     Active Substance: BUDESONIDE\FORMOTEROL FUMARATE DIHYDRATE
     Dosage: 160/4.5 MCG, UNKNOWN FREQUENCY
     Route: 055

REACTIONS (1)
  - Fatigue [Unknown]
